FAERS Safety Report 9604226 (Version 2)
Quarter: 2013Q3

REPORT INFORMATION
  Report Type: Spontaneous
  Country: US (occurrence: None)
  Receive Date: 20130506
  Receipt Date: 20130829
  Transmission Date: 20140515
  Serious: Yes (Hospitalization)
  Sender: FDA-Public Use
  Company Number: 147783

PATIENT
  Age: 70 Year
  Sex: Male
  Weight: 71 kg

DRUGS (1)
  1. LEUCOVORIN CALCIUM FOR INJ. 50MG [Suspect]
     Indication: COLON CANCER
     Route: 042
     Dates: start: 20130325, end: 20130408

REACTIONS (2)
  - Febrile neutropenia [None]
  - Bone marrow failure [None]
